FAERS Safety Report 15557100 (Version 1)
Quarter: 2018Q4

REPORT INFORMATION
  Report Type: Spontaneous
  Country: NL (occurrence: NL)
  Receive Date: 20181026
  Receipt Date: 20181026
  Transmission Date: 20190205
  Serious: Yes (Other)
  Sender: FDA-Public Use
  Company Number: NL-MYLANLABS-2018M1080455

PATIENT
  Sex: Male

DRUGS (1)
  1. METHYLFENIDAAT HCL MYLAN 5 MG, TABLETTEN [Suspect]
     Active Substance: METHYLPHENIDATE HYDROCHLORIDE
     Indication: AUTISM SPECTRUM DISORDER
     Dosage: 5 MG, 3D1T, 8 HOUR
     Dates: start: 20161104, end: 20170629

REACTIONS (4)
  - Restlessness [Recovering/Resolving]
  - Aggression [Recovering/Resolving]
  - Suicidal ideation [Recovering/Resolving]
  - Weight increased [Recovering/Resolving]
